FAERS Safety Report 14565573 (Version 3)
Quarter: 2018Q1

REPORT INFORMATION
  Report Type: Spontaneous
  Country: FR (occurrence: FR)
  Receive Date: 20180223
  Receipt Date: 20180328
  Transmission Date: 20180509
  Serious: Yes (Disabling, Other)
  Sender: FDA-Public Use
  Company Number: FR-AUROBINDO-AUR-APL-2018-008509

PATIENT
  Age: 50 Year
  Sex: Male
  Weight: 85 kg

DRUGS (3)
  1. LEVOTHYROXINE. [Concomitant]
     Active Substance: LEVOTHYROXINE
     Indication: HYPOTHYROIDISM
     Dosage: 200 MG, TWO TIMES A DAY
     Route: 048
     Dates: start: 20171110
  2. PANTOPRAZOLE [Concomitant]
     Active Substance: PANTOPRAZOLE
     Indication: PEPTIC ULCER
     Dosage: 40 MG, TWO TIMES A DAY
     Route: 048
     Dates: start: 20171110
  3. METFORMIN [Suspect]
     Active Substance: METFORMIN HYDROCHLORIDE
     Indication: TYPE 2 DIABETES MELLITUS
     Dosage: 1 DOSAGE FORM, TWO TIMES A DAY
     Route: 048
     Dates: start: 20171110

REACTIONS (4)
  - Diarrhoea [Not Recovered/Not Resolved]
  - Treatment noncompliance [Unknown]
  - Drug intolerance [Unknown]
  - Product substitution issue [Unknown]

NARRATIVE: CASE EVENT DATE: 20171110
